FAERS Safety Report 18468841 (Version 1)
Quarter: 2020Q4

REPORT INFORMATION
  Report Type: Spontaneous
  Country: US (occurrence: US)
  Receive Date: 20201105
  Receipt Date: 20201105
  Transmission Date: 20210114
  Serious: No
  Sender: FDA-Public Use
  Company Number: None

PATIENT
  Age: 32 Year
  Sex: Female
  Weight: 67.5 kg

DRUGS (4)
  1. AJOVY [Suspect]
     Active Substance: FREMANEZUMAB-VFRM
     Indication: MIGRAINE
     Dosage: ?          OTHER FREQUENCY:ONCE A MONTH;?
     Route: 058
     Dates: start: 20200924
  2. TROKENDI [Concomitant]
     Active Substance: TOPIRAMATE
  3. CARAFATE [Concomitant]
     Active Substance: SUCRALFATE
  4. BIRTH CONTROL [Concomitant]
     Active Substance: UNSPECIFIED INGREDIENT

REACTIONS (8)
  - Injection site reaction [None]
  - Insomnia [None]
  - Feeling abnormal [None]
  - Chest pain [None]
  - Weight increased [None]
  - Blepharospasm [None]
  - Anxiety [None]
  - Paraesthesia [None]

NARRATIVE: CASE EVENT DATE: 20201105
